FAERS Safety Report 20116955 (Version 4)
Quarter: 2023Q4

REPORT INFORMATION
  Report Type: Spontaneous
  Country: US (occurrence: US)
  Receive Date: 20211126
  Receipt Date: 20231102
  Transmission Date: 20240109
  Serious: Yes (Disabling, Other)
  Sender: FDA-Public Use
  Company Number: US-PURDUE-USA-2021-0251351

PATIENT
  Sex: Male

DRUGS (47)
  1. OXYCONTIN [Suspect]
     Active Substance: OXYCODONE HYDROCHLORIDE
     Indication: Pain
     Dosage: UNKNOWN
     Route: 048
  2. OXYCODONE HYDROCHLORIDE [Suspect]
     Active Substance: OXYCODONE HYDROCHLORIDE
     Indication: Pain
     Dosage: UNKNOWN
     Route: 048
  3. OXYCODONE HYDROCHLORIDE [Suspect]
     Active Substance: OXYCODONE HYDROCHLORIDE
     Indication: Product used for unknown indication
     Dosage: 10 MILLIGRAM, Q4H PRN
     Route: 048
  4. OXYCODONE HYDROCHLORIDE [Suspect]
     Active Substance: OXYCODONE HYDROCHLORIDE
     Dosage: 5 MILLIGRAM, Q4H PRN
     Route: 048
  5. MS CONTIN [Suspect]
     Active Substance: MORPHINE SULFATE
     Indication: Pain
     Dosage: 15 MG, BID
     Route: 048
     Dates: start: 20160727, end: 20160803
  6. MS CONTIN [Suspect]
     Active Substance: MORPHINE SULFATE
     Indication: Diverticulitis
     Dosage: 15 MG, BID
     Route: 048
     Dates: start: 20161223, end: 20161230
  7. MS CONTIN [Suspect]
     Active Substance: MORPHINE SULFATE
     Indication: Pain
     Dosage: 15 MG, Q12H
     Route: 048
     Dates: start: 20170208, end: 20170215
  8. MS CONTIN [Suspect]
     Active Substance: MORPHINE SULFATE
     Dosage: 15 MG, BID
     Route: 048
     Dates: end: 20170714
  9. MS CONTIN [Suspect]
     Active Substance: MORPHINE SULFATE
     Dosage: 15 MG, BID
     Route: 048
     Dates: end: 20170721
  10. MS CONTIN [Suspect]
     Active Substance: MORPHINE SULFATE
     Dosage: 15 MG, BID
     Route: 048
     Dates: start: 20171006, end: 20171013
  11. MS CONTIN [Suspect]
     Active Substance: MORPHINE SULFATE
     Dosage: 75 MG, UNK
     Route: 048
  12. MS CONTIN [Suspect]
     Active Substance: MORPHINE SULFATE
     Dosage: 75 MG, DAILY
     Route: 048
     Dates: start: 2016, end: 2018
  13. MS CONTIN [Suspect]
     Active Substance: MORPHINE SULFATE
     Dosage: UNKNOWN
     Route: 048
     Dates: start: 20181225, end: 20190125
  14. MS CONTIN [Suspect]
     Active Substance: MORPHINE SULFATE
     Dosage: 30 MILLIGRAM, BID (TAKE ONE TABLET TWICE A DAY FOR 2 DAYS)
     Route: 048
  15. MS CONTIN [Suspect]
     Active Substance: MORPHINE SULFATE
     Dosage: 30 MILLIGRAM, DAILY (TAKE ONE TABLET BY MOUTH EVERY DAY FOR TWO DAYS)
     Route: 048
  16. MS CONTIN [Suspect]
     Active Substance: MORPHINE SULFATE
     Dosage: 15 MILLIGRAM (TAPER OVER NEXT 4 WEEKS AS DIRECTED)
     Route: 048
  17. MS CONTIN [Suspect]
     Active Substance: MORPHINE SULFATE
     Dosage: 15 MILLIGRAM, TID (TAKE THREE TABLETS BY MOUTH EVERY MORNING)
     Route: 048
  18. MS CONTIN [Suspect]
     Active Substance: MORPHINE SULFATE
     Dosage: 15 MILLIGRAM, BID (TAKE TWO TABLETS BY MOUTH EVERY EVENING)
     Route: 048
  19. MS CONTIN [Suspect]
     Active Substance: MORPHINE SULFATE
     Dosage: 80 MILLIGRAM, AM (X1 WEEK)
     Route: 048
     Dates: start: 20190101, end: 20190107
  20. MS CONTIN [Suspect]
     Active Substance: MORPHINE SULFATE
     Dosage: 15 MILLIGRAM, PM (X7DAYS)
     Route: 048
     Dates: start: 20190101, end: 20190107
  21. MS CONTIN [Suspect]
     Active Substance: MORPHINE SULFATE
     Dosage: 15 MILLIGRAM, AM (X2 WEEKS)
     Route: 048
     Dates: start: 20190108
  22. MS CONTIN [Suspect]
     Active Substance: MORPHINE SULFATE
     Dosage: 15 MILLIGRAM (X2 WEEKS)
     Route: 048
     Dates: start: 20190108, end: 20190121
  23. MS CONTIN [Suspect]
     Active Substance: MORPHINE SULFATE
     Dosage: 45 MILLIGRAM, AM
     Route: 048
     Dates: start: 20181102
  24. MS CONTIN [Suspect]
     Active Substance: MORPHINE SULFATE
     Dosage: 30 MILLIGRAM, PM
     Route: 048
     Dates: start: 20181102
  25. MS CONTIN [Suspect]
     Active Substance: MORPHINE SULFATE
     Dosage: 75 MILLIGRAM, DAILY
     Route: 048
  26. MORPHINE SULFATE [Suspect]
     Active Substance: MORPHINE SULFATE
     Indication: Pain
     Dosage: UNKNOWN
     Route: 048
  27. MORPHINE SULFATE [Suspect]
     Active Substance: MORPHINE SULFATE
     Indication: Product used for unknown indication
     Dosage: UNKNOWN
     Route: 048
  28. ACETAMINOPHEN\OXYCODONE HYDROCHLORIDE [Suspect]
     Active Substance: ACETAMINOPHEN\OXYCODONE HYDROCHLORIDE
     Indication: Pain
     Dosage: UNK
     Route: 048
  29. ACETAMINOPHEN\OXYCODONE HYDROCHLORIDE [Suspect]
     Active Substance: ACETAMINOPHEN\OXYCODONE HYDROCHLORIDE
     Dosage: 1 TABLET, BID
     Route: 048
  30. TRAMADOL [Suspect]
     Active Substance: TRAMADOL\TRAMADOL HYDROCHLORIDE
     Indication: Back pain
     Dosage: 50 MG, TID
     Route: 048
  31. TRAMADOL [Suspect]
     Active Substance: TRAMADOL\TRAMADOL HYDROCHLORIDE
     Dosage: UNKNOWN
     Route: 048
     Dates: start: 2021
  32. TRAMADOL [Suspect]
     Active Substance: TRAMADOL\TRAMADOL HYDROCHLORIDE
     Dosage: 50 MILLIGRAM, Q6H PRN (1 TABLET)
     Route: 048
  33. TAPENTADOL [Suspect]
     Active Substance: TAPENTADOL
     Indication: Product used for unknown indication
     Dosage: 25 MILLIGRAM, TID
     Route: 048
     Dates: start: 2022
  34. HEROIN [Suspect]
     Active Substance: DIAMORPHINE
     Indication: Pain
     Dosage: UNKNOWN
     Route: 065
  35. ALBUTEROL SULFATE [Concomitant]
     Active Substance: ALBUTEROL SULFATE
     Indication: Product used for unknown indication
     Dosage: 2.5 MG, Q6H
     Route: 045
  36. ALBUTEROL SULFATE [Concomitant]
     Active Substance: ALBUTEROL SULFATE
     Dosage: 2  PUFFS EVERY 6 HOURS
     Route: 065
     Dates: end: 20170914
  37. METHADONE HYDROCHLORIDE [Concomitant]
     Active Substance: METHADONE HYDROCHLORIDE
     Indication: Pain
     Dosage: 10 MG, Q4H
     Route: 048
     Dates: start: 20160101
  38. METHADONE HYDROCHLORIDE [Concomitant]
     Active Substance: METHADONE HYDROCHLORIDE
     Indication: Drug use disorder
     Dosage: 10 MG, Q4H
     Route: 048
     Dates: start: 20160102
  39. METHADONE HYDROCHLORIDE [Concomitant]
     Active Substance: METHADONE HYDROCHLORIDE
     Dosage: 10 MG, Q4H
     Route: 048
     Dates: start: 20160103
  40. METHADONE HYDROCHLORIDE [Concomitant]
     Active Substance: METHADONE HYDROCHLORIDE
     Dosage: 5 MG, Q4H
     Route: 048
     Dates: start: 20160104
  41. METHADONE HYDROCHLORIDE [Concomitant]
     Active Substance: METHADONE HYDROCHLORIDE
     Dosage: 5 MG, Q4H
     Route: 048
     Dates: start: 20160105
  42. METHADONE HYDROCHLORIDE [Concomitant]
     Active Substance: METHADONE HYDROCHLORIDE
     Dosage: 5 MG, Q4H
     Route: 048
     Dates: start: 20160106, end: 20160107
  43. ROXICODONE [Concomitant]
     Active Substance: OXYCODONE HYDROCHLORIDE
     Indication: Pain
     Dosage: 30 MG, Q4H
     Route: 048
  44. GABAPENTIN [Concomitant]
     Active Substance: GABAPENTIN
     Indication: Product used for unknown indication
     Dosage: 400 MG, TID
     Route: 048
     Dates: end: 20170716
  45. MONTELUKAST [Concomitant]
     Active Substance: MONTELUKAST SODIUM
     Indication: Product used for unknown indication
     Dosage: 10 MG, DAILY AT BED TIME
     Route: 065
     Dates: end: 20170814
  46. ADVAIR HFA [Concomitant]
     Active Substance: FLUTICASONE PROPIONATE\SALMETEROL XINAFOATE
     Indication: Product used for unknown indication
     Dosage: 500-50 MCG (1 INHALETION TWICE A DAY)
     Route: 055
     Dates: end: 20170926
  47. NEURONTIN [Concomitant]
     Active Substance: GABAPENTIN
     Indication: Product used for unknown indication
     Dosage: UNK
     Route: 065
     Dates: start: 202012

REACTIONS (6)
  - Drug dependence [Unknown]
  - Drug abuse [Unknown]
  - Loss of personal independence in daily activities [Unknown]
  - Quality of life decreased [Unknown]
  - Developmental delay [Unknown]
  - Drug withdrawal syndrome [Unknown]

NARRATIVE: CASE EVENT DATE: 20010101
